FAERS Safety Report 13773532 (Version 3)
Quarter: 2017Q3

REPORT INFORMATION
  Report Type: Spontaneous
  Country: US (occurrence: US)
  Receive Date: 20170720
  Receipt Date: 20170920
  Transmission Date: 20171127
  Serious: No
  Sender: FDA-Public Use
  Company Number: US-RECKITT BENCKISER HEALTHCARE INT LIMITED-RB-83371-2017

PATIENT
  Sex: Female

DRUGS (2)
  1. MUCINEX [Suspect]
     Active Substance: GUAIFENESIN
     Dosage: 1 UNK, SINGLE
     Route: 065
     Dates: start: 20170123, end: 20170123
  2. MUCINEX [Suspect]
     Active Substance: GUAIFENESIN
     Indication: COUGH
     Dosage: 2 DF, QID
     Route: 065
     Dates: start: 20170120, end: 20170122

REACTIONS (1)
  - Drug ineffective [Not Recovered/Not Resolved]
